FAERS Safety Report 5829020-7 (Version None)
Quarter: 2008Q3

REPORT INFORMATION
  Report Type: 
  Country: None (occurrence: None)
  Receive Date: 20080731
  Receipt Date: 20080724
  Transmission Date: 20090109
  Serious: Yes (Hospitalization, Other)
  Sender: FDA-Public Use
  Company Number: PHBS2004JP09447

PATIENT
  Sex: Female
  Weight: 60 kg

DRUGS (10)
  1. TEGRETOL [Suspect]
     Indication: TRIGEMINAL NEURALGIA
     Dosage: 600 MG/DAY
     Route: 048
     Dates: start: 20030217, end: 20030601
  2. TEGRETOL [Suspect]
     Dosage: 200 MG/DAY
     Route: 048
     Dates: start: 20030601, end: 20030807
  3. EXCEGRAN [Suspect]
     Indication: TRIGEMINAL NEURALGIA
     Dosage: 150 TO 200 MG/DAY
     Route: 065
     Dates: start: 20030630, end: 20030805
  4. EXCEGRAN [Suspect]
     Dosage: 250 MG/DAY
     Dates: start: 20030806, end: 20030807
  5. MINOCYCLINE HCL [Suspect]
     Indication: OROPHARYNGEAL PAIN
     Dosage: 200 MG/DAY
     Route: 048
     Dates: start: 20030807
  6. MINOCYCLINE HCL [Suspect]
     Indication: PYREXIA
  7. MINOCYCLINE HCL [Suspect]
     Indication: PHARYNGITIS
  8. AZATHIOPRINE [Concomitant]
     Dosage: 100 MG/DAY
  9. CYCLOPHOSPHAMIDE [Concomitant]
     Dosage: 500 MG/DAY
  10. PLASMAPHERESIS [Concomitant]
     Dosage: DOUBLE FILTRATION

REACTIONS (19)
  - BLISTER [None]
  - DRUG ERUPTION [None]
  - DRUG RASH WITH EOSINOPHILIA AND SYSTEMIC SYMPTOMS [None]
  - EOSINOPHIL COUNT INCREASED [None]
  - ERYTHEMA MULTIFORME [None]
  - GAMMA-GLUTAMYLTRANSFERASE INCREASED [None]
  - HEPATIC ENZYME INCREASED [None]
  - LEUKOCYTOSIS [None]
  - LYMPHADENITIS [None]
  - LYMPHOCYTE MORPHOLOGY ABNORMAL [None]
  - ORAL CANDIDIASIS [None]
  - OROPHARYNGEAL PAIN [None]
  - PEMPHIGOID [None]
  - PERIVASCULAR DERMATITIS [None]
  - PRURITUS [None]
  - PSYCHOTIC DISORDER [None]
  - PYREXIA [None]
  - SCLERODERMA [None]
  - TOXIC SKIN ERUPTION [None]
